FAERS Safety Report 8270601 (Version 4)
Quarter: 2013Q4

REPORT INFORMATION
  Report Type: Spontaneous
  Country: US (occurrence: None)
  Receive Date: 20111122
  Receipt Date: 20131226
  Transmission Date: 20140711
  Serious: Yes (Other)
  Sender: FDA-Public Use
  Company Number: PHHY2011US25108

PATIENT
  Age: 42 Year
  Sex: Female

DRUGS (4)
  1. GILENYA [Suspect]
     Indication: MULTIPLE SCLEROSIS
     Dosage: 0.5 MG, QD, ORAL :  0.25 MG,ORAL
     Route: 048
     Dates: start: 20110318
  2. PREDNISONE (PREDNISONE) [Concomitant]
  3. NADOLOL (NADALOL) [Concomitant]
  4. PROPANOLOL (PROPRANOLOL) [Concomitant]

REACTIONS (3)
  - Migraine [None]
  - Incorrect dose administered [None]
  - Headache [None]
